FAERS Safety Report 22274769 (Version 1)
Quarter: 2023Q2

REPORT INFORMATION
  Report Type: Spontaneous
  Country: US (occurrence: US)
  Receive Date: 20230502
  Receipt Date: 20230502
  Transmission Date: 20230721
  Serious: No
  Sender: FDA-Public Use
  Company Number: US-BAYER-2023A060209

PATIENT
  Age: 67 Year
  Sex: Male

DRUGS (1)
  1. KERENDIA [Suspect]
     Active Substance: FINERENONE
     Indication: Type 1 diabetes mellitus
     Dosage: 20 MG, QD

REACTIONS (6)
  - Off label use [None]
  - Wheezing [None]
  - Asthenia [None]
  - Fatigue [None]
  - Gait disturbance [None]
  - Malaise [None]
